FAERS Safety Report 17117056 (Version 1)
Quarter: 2019Q4

REPORT INFORMATION
  Report Type: Spontaneous
  Country: PL (occurrence: PL)
  Receive Date: 20191205
  Receipt Date: 20191205
  Transmission Date: 20200122
  Serious: Yes (Other)
  Sender: FDA-Public Use
  Company Number: ALC2019PL001899

PATIENT

DRUGS (13)
  1. LEVOXA [Suspect]
     Active Substance: LEVOFLOXACIN
     Indication: DYSURIA
  2. CILOXAN [Suspect]
     Active Substance: CIPROFLOXACIN HYDROCHLORIDE
     Indication: PENILE BURNING SENSATION
  3. TOBREX [Suspect]
     Active Substance: TOBRAMYCIN
     Indication: DYSURIA
  4. LEVOXA [Suspect]
     Active Substance: LEVOFLOXACIN
     Indication: ESCHERICHIA INFECTION
     Dosage: UNK
     Route: 065
     Dates: start: 20190212, end: 20190213
  5. CILOXAN [Suspect]
     Active Substance: CIPROFLOXACIN HYDROCHLORIDE
     Indication: DYSURIA
     Dosage: UNK
     Route: 061
     Dates: start: 20190202, end: 20190203
  6. TRIDERM [TRIAMCINOLONE ACETONIDE] [Concomitant]
     Indication: PRODUCT USED FOR UNKNOWN INDICATION
     Dosage: UNK
     Route: 065
     Dates: start: 20190205, end: 20190212
  7. CILOXAN [Suspect]
     Active Substance: CIPROFLOXACIN HYDROCHLORIDE
     Indication: ESCHERICHIA INFECTION
  8. TOBREX [Suspect]
     Active Substance: TOBRAMYCIN
     Indication: ESCHERICHIA INFECTION
     Dosage: UNK
     Route: 061
     Dates: start: 20190203, end: 20190205
  9. LEVOXA [Suspect]
     Active Substance: LEVOFLOXACIN
     Indication: PENILE BURNING SENSATION
  10. BACTRIM [Concomitant]
     Active Substance: SULFAMETHOXAZOLE\TRIMETHOPRIM
     Indication: PRODUCT USED FOR UNKNOWN INDICATION
     Dosage: UNK
     Route: 065
     Dates: start: 20190202, end: 20190205
  11. CIPRONEX [CIPROFLOXACIN] [Concomitant]
     Indication: PRODUCT USED FOR UNKNOWN INDICATION
     Dosage: UNK
     Route: 065
     Dates: start: 20190205, end: 20190212
  12. TOBREX [Suspect]
     Active Substance: TOBRAMYCIN
     Indication: PENILE BURNING SENSATION
  13. TRIBIOTIC [Concomitant]
     Active Substance: BACITRACIN ZINC\NEOMYCIN SULFATE\POLYMYXIN B SULFATE
     Indication: PRODUCT USED FOR UNKNOWN INDICATION
     Dosage: UNK
     Route: 065
     Dates: start: 20190212

REACTIONS (15)
  - Sleep disorder [Unknown]
  - Dyspnoea [Unknown]
  - Penile erythema [Unknown]
  - Paraesthesia oral [Unknown]
  - Penile burning sensation [Unknown]
  - Off label use [Unknown]
  - Drug ineffective [Unknown]
  - Palpitations [Unknown]
  - Feeling hot [Unknown]
  - Paraesthesia [Unknown]
  - Pruritus genital [Unknown]
  - Penile blister [Unknown]
  - Off label use [Unknown]
  - Penile pain [Unknown]
  - Penile infection [Unknown]

NARRATIVE: CASE EVENT DATE: 20190202
